FAERS Safety Report 6277993-3 (Version None)
Quarter: 2009Q3

REPORT INFORMATION
  Report Type: 
  Country: None (occurrence: None)
  Receive Date: 20090722
  Receipt Date: 20090720
  Transmission Date: 20100115
  Serious: Yes (Other)
  Sender: FDA-Public Use
  Company Number: AU-BRISTOL-MYERS SQUIBB COMPANY-14707319

PATIENT
  Sex: Female

DRUGS (1)
  1. SPRYCEL [Suspect]
     Dosage: SPRYCEL 70MG TWICE A DAY FOR TWO TO THREE YEARS AND NOW CHANGED TO SPRYCEL 70MG ONCE DAILY

REACTIONS (2)
  - PLEURAL EFFUSION [None]
  - PULMONARY MASS [None]
